FAERS Safety Report 14015025 (Version 1)
Quarter: 2017Q3

REPORT INFORMATION
  Report Type: Report from Study
  Country: BR (occurrence: BR)
  Receive Date: 20170927
  Receipt Date: 20170927
  Transmission Date: 20171128
  Serious: Yes (Other)
  Sender: FDA-Public Use
  Company Number: PHHY2017BR141004

PATIENT
  Sex: Female
  Weight: 57 kg

DRUGS (2)
  1. TEGRETOL [Suspect]
     Active Substance: CARBAMAZEPINE
     Indication: TRIGEMINAL NEURALGIA
     Dosage: 200 MG, SHE USED AN AVERAGE OF THREE FOUR TABLETS PER DAY
     Route: 048
     Dates: start: 2009
  2. TEGRETOL [Suspect]
     Active Substance: CARBAMAZEPINE
     Dosage: 4 DF, Q6H (BECAUSE OF PAIN SOMETIMES HE USES 4 TALETS)
     Route: 048

REACTIONS (6)
  - Condition aggravated [Not Recovered/Not Resolved]
  - Malaise [Unknown]
  - Trigeminal neuralgia [Not Recovered/Not Resolved]
  - Therapeutic response decreased [Unknown]
  - Dyspepsia [Not Recovered/Not Resolved]
  - Pain [Unknown]
